FAERS Safety Report 9397456 (Version 1)
Quarter: 2013Q3

REPORT INFORMATION
  Report Type: Spontaneous
  Country: US (occurrence: None)
  Receive Date: 20130711
  Receipt Date: 20130711
  Transmission Date: 20140515
  Serious: Yes (Other)
  Sender: FDA-Public Use
  Company Number: None

PATIENT
  Age: 24 Year
  Sex: Female
  Weight: 56.7 kg

DRUGS (2)
  1. LAMOTRIGINE XR [Suspect]
     Indication: ENCEPHALITIS
     Dosage: LAMICTAL XR 200MG BID PO
     Route: 048
     Dates: start: 20130701, end: 20130710
  2. LAMOTRIGINE XR [Suspect]
     Dosage: LAMICTAL XR 100 MG  QHS  PO
     Route: 048

REACTIONS (7)
  - Nausea [None]
  - Vomiting [None]
  - Dizziness [None]
  - Convulsion [None]
  - Condition aggravated [None]
  - Product substitution issue [None]
  - Therapeutic response unexpected with drug substitution [None]
